FAERS Safety Report 6230027-9 (Version None)
Quarter: 2009Q2

REPORT INFORMATION
  Report Type: 
  Country: None (occurrence: None)
  Receive Date: 20090615
  Receipt Date: 20090601
  Transmission Date: 20091009
  Serious: Yes (Disabling, Other)
  Sender: FDA-Public Use
  Company Number: GB-MYLANLABS-2009S1009746

PATIENT
  Sex: Male

DRUGS (9)
  1. DIAZEPAM [Suspect]
     Indication: DRUG USE FOR UNKNOWN INDICATION
  2. CLOPIXOL [Suspect]
     Indication: DRUG USE FOR UNKNOWN INDICATION
  3. HALOPERIDOL [Suspect]
     Indication: DRUG USE FOR UNKNOWN INDICATION
  4. RISPERIDONE [Suspect]
     Indication: DRUG USE FOR UNKNOWN INDICATION
  5. ACETAMINOPHEN [Concomitant]
     Indication: DRUG USE FOR UNKNOWN INDICATION
     Dosage: UNCONCIOUS
  6. CLOZAPINE [Concomitant]
     Indication: TREMOR
  7. PROZAC [Concomitant]
     Indication: DEPRESSION
  8. PSEUDOEPHEDRINE HCL [Concomitant]
     Indication: DRUG USE FOR UNKNOWN INDICATION
     Dosage: UNCONSCIOUS
  9. SULPIRIDE [Concomitant]
     Indication: AKATHISIA

REACTIONS (1)
  - NEUROLEPTIC MALIGNANT SYNDROME [None]
